FAERS Safety Report 20492112 (Version 3)
Quarter: 2022Q1

REPORT INFORMATION
  Report Type: Report from Study
  Country: US (occurrence: US)
  Receive Date: 20220218
  Receipt Date: 20220330
  Transmission Date: 20220423
  Serious: Yes (Hospitalization, Other)
  Sender: FDA-Public Use
  Company Number: US-NOVARTISTESTPH-NVSC2022US035119

PATIENT
  Age: 73 Year
  Sex: Female

DRUGS (1)
  1. TASIGNA [Suspect]
     Active Substance: NILOTINIB
     Indication: Chronic myeloid leukaemia
     Dosage: 300 MG, BID
     Route: 048
     Dates: start: 20180329

REACTIONS (6)
  - Pneumonia bacterial [Recovered/Resolved]
  - SARS-CoV-2 test positive [Recovered/Resolved]
  - Pulmonary congestion [Unknown]
  - Pyrexia [Unknown]
  - Cough [Unknown]
  - Colitis [Recovered/Resolved]

NARRATIVE: CASE EVENT DATE: 20211122
